FAERS Safety Report 7117834-5 (Version None)
Quarter: 2010Q4

REPORT INFORMATION
  Report Type: 
  Country: None (occurrence: None)
  Receive Date: 20101118
  Receipt Date: 20101118
  Transmission Date: 20110411
  Serious: Yes (Life-Threatening)
  Sender: FDA-Public Use
  Company Number: None

PATIENT
  Sex: Female
  Weight: 65.7716 kg

DRUGS (2)
  1. TOPIRAMATE [Suspect]
     Indication: HERPES ZOSTER
     Dosage: 1 OR 2 TWICE DAILY
     Dates: start: 20101001, end: 20101003
  2. VOLTAREN [Concomitant]

REACTIONS (1)
  - SUICIDAL IDEATION [None]
